FAERS Safety Report 25954083 (Version 1)
Quarter: 2025Q4

REPORT INFORMATION
  Report Type: Spontaneous
  Country: US (occurrence: None)
  Receive Date: 20251023
  Receipt Date: 20251023
  Transmission Date: 20260118
  Serious: Yes (Disabling)
  Sender: FDA-CTU
  Company Number: None

PATIENT
  Age: 60 Year
  Sex: Female
  Weight: 58.5 kg

DRUGS (14)
  1. MONTELUKAST [Suspect]
     Active Substance: MONTELUKAST
     Indication: Radiation fibrosis
  2. Letrozole CPAP [Concomitant]
  3. VitE [Concomitant]
  4. FISH OIL [Concomitant]
     Active Substance: FISH OIL
  5. VitC [Concomitant]
  6. Ca [Concomitant]
  7. VitD with K2 [Concomitant]
  8. CLARITIN [Concomitant]
     Active Substance: LORATADINE
  9. MAGNESIUM [Concomitant]
     Active Substance: MAGNESIUM
  10. ASPIRIN [Concomitant]
     Active Substance: ASPIRIN
  11. MELATONIN [Concomitant]
     Active Substance: MELATONIN
  12. Tylenol and/or Motrin [Concomitant]
  13. PEPCID [Concomitant]
     Active Substance: FAMOTIDINE
  14. FIBER THERAPY (CALCIUM POLYCARBOPHIL) [Concomitant]
     Active Substance: CALCIUM POLYCARBOPHIL

REACTIONS (6)
  - Feeling of despair [None]
  - Fatigue [None]
  - Self-destructive behaviour [None]
  - Self-injurious ideation [None]
  - Nightmare [None]
  - Therapy cessation [None]

NARRATIVE: CASE EVENT DATE: 20251022
